FAERS Safety Report 9082489 (Version 1)
Quarter: 2013Q1

REPORT INFORMATION
  Report Type: Report from Study
  Country: US (occurrence: US)
  Receive Date: 20130130
  Receipt Date: 20130130
  Transmission Date: 20140127
  Serious: Yes (Other)
  Sender: FDA-Public Use
  Company Number: US-ABBOTT-12P-163-0921354-00

PATIENT
  Age: 40 None
  Sex: Female

DRUGS (10)
  1. HUMIRA [Suspect]
     Indication: CROHN^S DISEASE
     Dates: start: 2005, end: 2006
  2. HUMIRA [Suspect]
     Dosage: RESTARTED ABOUT 4 MONTHS AGO
     Dates: start: 2012, end: 2012
  3. HUMIRA [Suspect]
     Dosage: 1 IN 1 WEEK, ABOUT 2 MONTHS AGO
     Dates: start: 2012
  4. BUDESONIDE [Concomitant]
     Indication: CROHN^S DISEASE
     Route: 048
  5. CETIRIZINE HCL [Concomitant]
     Indication: HYPERSENSITIVITY
     Dosage: DAILY, AT BEDTIME
     Route: 048
  6. PROZAC [Concomitant]
     Indication: DEPRESSION
     Route: 048
  7. ALPRAZOLAM [Concomitant]
     Indication: ANXIETY
  8. IBUPROFEN [Concomitant]
     Indication: PAIN
     Route: 048
  9. IBUPROFEN [Concomitant]
     Indication: INFLAMMATION
  10. HYDROCODONE [Concomitant]
     Indication: PAIN

REACTIONS (13)
  - Colectomy [Unknown]
  - Drug ineffective [Not Recovered/Not Resolved]
  - Injection site erythema [Unknown]
  - Injection site pruritus [Unknown]
  - Injection site pain [Unknown]
  - Drug effect decreased [Unknown]
  - Rash pruritic [Recovered/Resolved]
  - Rash vesicular [Recovered/Resolved]
  - Arthropod bite [Recovered/Resolved]
  - Rash [Not Recovered/Not Resolved]
  - Pain of skin [Not Recovered/Not Resolved]
  - Ocular icterus [Not Recovered/Not Resolved]
  - Rash [Not Recovered/Not Resolved]
